FAERS Safety Report 11956565 (Version 1)
Quarter: 2016Q1

REPORT INFORMATION
  Report Type: Spontaneous
  Country: GB (occurrence: GB)
  Receive Date: 20160126
  Receipt Date: 20160126
  Transmission Date: 20160526
  Serious: Yes (Life-Threatening, Hospitalization, Other)
  Sender: FDA-Public Use
  Company Number: GB-COL_21783_2016

PATIENT
  Age: 55 Year
  Sex: Male

DRUGS (1)
  1. CHLORHEXIDINE [Suspect]
     Active Substance: CHLORHEXIDINE
     Indication: IRRIGATION THERAPY
     Dosage: NI/ NI/
     Route: 002
     Dates: start: 20141112, end: 20141112

REACTIONS (2)
  - Circulatory collapse [Recovered/Resolved]
  - Anaphylactic reaction [Recovered/Resolved]

NARRATIVE: CASE EVENT DATE: 20141112
